FAERS Safety Report 4349291-6 (Version None)
Quarter: 2004Q2

REPORT INFORMATION
  Report Type: 
  Country: None (occurrence: None)
  Receive Date: 20040428
  Receipt Date: 20011130
  Transmission Date: 20050107
  Serious: Yes (Hospitalization, Other)
  Sender: FDA-Public Use
  Company Number: US-BRISTOL-MYERS SQUIBB COMPANY-11609385

PATIENT
  Age: 46 Year
  Sex: Female

DRUGS (5)
  1. BMS224818 [Concomitant]
     Dosage: NOT REALLOCATED
     Route: 042
     Dates: start: 20011016
  2. CELLCEPT [Suspect]
     Dates: start: 20011016
  3. PREDNISONE [Suspect]
     Dates: start: 20011019
  4. BACTRIM [Concomitant]
     Indication: PROPHYLAXIS
  5. ACYCLOVIR [Concomitant]
     Indication: PROPHYLAXIS

REACTIONS (2)
  - CYTOMEGALOVIRUS HEPATITIS [None]
  - PNEUMONIA CYTOMEGALOVIRAL [None]
